FAERS Safety Report 22117760 (Version 4)
Quarter: 2024Q2

REPORT INFORMATION
  Report Type: Spontaneous
  Country: RU (occurrence: None)
  Receive Date: 20230321
  Receipt Date: 20240418
  Transmission Date: 20240715
  Serious: Yes (Other)
  Sender: FDA-Public Use
  Company Number: RU-ROCHE-3308214

PATIENT
  Age: 57 Year
  Sex: Female

DRUGS (21)
  1. PERTUZUMAB [Suspect]
     Active Substance: PERTUZUMAB
     Indication: Breast cancer
     Dosage: CYCLE 1
     Route: 041
     Dates: start: 20210322, end: 20210324
  2. PERTUZUMAB [Suspect]
     Active Substance: PERTUZUMAB
     Dosage: CYCLE 2
     Route: 041
     Dates: start: 20210413, end: 20210414
  3. PERTUZUMAB [Suspect]
     Active Substance: PERTUZUMAB
     Dosage: CYCLE 3
     Route: 041
     Dates: start: 20210504, end: 20210505
  4. PERTUZUMAB [Suspect]
     Active Substance: PERTUZUMAB
     Dosage: CYCLE 4
     Route: 041
     Dates: start: 20210525, end: 20210527
  5. PERTUZUMAB [Suspect]
     Active Substance: PERTUZUMAB
     Dosage: CYCLE 5
     Route: 041
     Dates: start: 20210615, end: 20210616
  6. PERTUZUMAB [Suspect]
     Active Substance: PERTUZUMAB
     Dosage: CYCLE 11
     Route: 041
     Dates: start: 20220321
  7. PERTUZUMAB [Suspect]
     Active Substance: PERTUZUMAB
     Route: 041
     Dates: start: 20220602
  8. TRASTUZUMAB [Suspect]
     Active Substance: TRASTUZUMAB
     Indication: Breast cancer
     Dosage: CYCLE 1
     Route: 041
     Dates: start: 20210322, end: 20210324
  9. TRASTUZUMAB [Suspect]
     Active Substance: TRASTUZUMAB
     Dosage: CYCLE 11
     Route: 041
     Dates: start: 20220321
  10. TRASTUZUMAB [Suspect]
     Active Substance: TRASTUZUMAB
     Route: 041
     Dates: start: 20220602
  11. TRASTUZUMAB [Suspect]
     Active Substance: TRASTUZUMAB
     Indication: Breast cancer
     Dosage: CYCLE 8
     Route: 065
     Dates: start: 20190723
  12. TRASTUZUMAB [Suspect]
     Active Substance: TRASTUZUMAB
     Dosage: CYCLE 10
     Route: 065
     Dates: start: 20190903
  13. TRASTUZUMAB [Suspect]
     Active Substance: TRASTUZUMAB
     Dosage: CYCLE 2
     Route: 065
     Dates: start: 20210413, end: 20210414
  14. TRASTUZUMAB [Suspect]
     Active Substance: TRASTUZUMAB
     Dosage: CYCLE 3
     Route: 065
     Dates: start: 20210504, end: 20210505
  15. TRASTUZUMAB [Suspect]
     Active Substance: TRASTUZUMAB
     Dosage: CYCLE 4
     Route: 065
     Dates: start: 20210525, end: 20210527
  16. TRASTUZUMAB [Suspect]
     Active Substance: TRASTUZUMAB
     Dosage: CYCLE 5
     Route: 065
     Dates: start: 20210615, end: 20210616
  17. DOCETAXEL [Suspect]
     Active Substance: DOCETAXEL\DOCETAXEL ANHYDROUS
     Indication: Breast cancer
     Dosage: CYCLE 1
     Route: 065
     Dates: start: 20210322, end: 20210324
  18. DOCETAXEL [Suspect]
     Active Substance: DOCETAXEL\DOCETAXEL ANHYDROUS
     Dosage: CYCLE 2
     Route: 065
     Dates: start: 20210413, end: 20210414
  19. DOCETAXEL [Suspect]
     Active Substance: DOCETAXEL\DOCETAXEL ANHYDROUS
     Dosage: CYCLE 3
     Route: 065
     Dates: start: 20210504, end: 20210505
  20. DOCETAXEL [Suspect]
     Active Substance: DOCETAXEL\DOCETAXEL ANHYDROUS
     Dosage: CYCLE 4
     Route: 065
     Dates: start: 20210525, end: 20210527
  21. DOCETAXEL [Suspect]
     Active Substance: DOCETAXEL\DOCETAXEL ANHYDROUS
     Dosage: CYCLE 5
     Route: 065
     Dates: start: 20210615, end: 20210616

REACTIONS (19)
  - Cerebral atrophy [Unknown]
  - Vascular encephalopathy [Unknown]
  - Granuloma [Unknown]
  - Radiation pneumonitis [Unknown]
  - Metastases to liver [Unknown]
  - Leukoencephalopathy [Unknown]
  - Metastases to lymph nodes [Unknown]
  - Breast fibrosis [Unknown]
  - Hepatomegaly [Unknown]
  - Splenic cyst [Unknown]
  - Gallbladder disorder [Unknown]
  - Hepatic lesion [Unknown]
  - Chronic gastritis [Unknown]
  - Osteosclerosis [Unknown]
  - Thyroid cyst [Unknown]
  - Ovarian neoplasm [Unknown]
  - Uterine leiomyoma [Unknown]
  - Lung neoplasm [Unknown]
  - Cerebral microangiopathy [Unknown]
